FAERS Safety Report 9950842 (Version 2)
Quarter: 2014Q1

REPORT INFORMATION
  Report Type: Report from Study
  Country: US (occurrence: US)
  Receive Date: 20140304
  Receipt Date: 20140304
  Transmission Date: 20141002
  Serious: No
  Sender: FDA-Public Use
  Company Number: US-ABBVIE-13P-163-1055788-00

PATIENT
  Age: 57 Year
  Sex: Female

DRUGS (13)
  1. HUMIRA [Suspect]
     Indication: COLITIS ULCERATIVE
     Dates: start: 201212
  2. ZOLPIDEM TARTRATE [Concomitant]
     Indication: INSOMNIA
     Dosage: EVERY NIGHT
  3. ZOLOFT [Concomitant]
     Indication: DEPRESSION
  4. XANAX [Concomitant]
     Indication: ANXIETY
  5. APRISO [Concomitant]
     Indication: COLITIS ULCERATIVE
     Dosage: IN THE AM
  6. APRISO [Concomitant]
     Indication: HORMONE REPLACEMENT THERAPY
  7. RANITIDINE [Concomitant]
     Indication: GASTROOESOPHAGEAL REFLUX DISEASE
     Dosage: EVERY AM
  8. CETIRIZIN [Concomitant]
     Indication: SINUS CONGESTION
     Dosage: DAILY
  9. FISH OIL [Concomitant]
     Indication: PRODUCT USED FOR UNKNOWN INDICATION
     Dosage: DAILY
  10. CALCIUM [Concomitant]
     Indication: PRODUCT USED FOR UNKNOWN INDICATION
     Dosage: DAILY
  11. RECLAST [Concomitant]
     Indication: OSTEOPOROSIS
     Dosage: YEARLY
     Route: 042
  12. BIOTIN [Concomitant]
     Indication: ONYCHOCLASIS
     Dosage: DAILY
  13. BIOTIN [Concomitant]
     Indication: TRICHORRHEXIS

REACTIONS (4)
  - Endodontic procedure [Not Recovered/Not Resolved]
  - Infection [Not Recovered/Not Resolved]
  - Nodule [Not Recovered/Not Resolved]
  - Nodule [Not Recovered/Not Resolved]
